FAERS Safety Report 25038991 (Version 2)
Quarter: 2025Q2

REPORT INFORMATION
  Report Type: Report from Study
  Country: US (occurrence: US)
  Receive Date: 20250305
  Receipt Date: 20250501
  Transmission Date: 20250716
  Serious: Yes (Other)
  Sender: ABBVIE
  Company Number: US-ABBVIE-6153897

PATIENT
  Sex: Male

DRUGS (1)
  1. SKYRIZI [Suspect]
     Active Substance: RISANKIZUMAB-RZAA
     Indication: Psoriasis
     Route: 058
     Dates: start: 20201211

REACTIONS (9)
  - Blindness unilateral [Not Recovered/Not Resolved]
  - Localised infection [Not Recovered/Not Resolved]
  - Glaucoma [Unknown]
  - Fall [Unknown]
  - Limb injury [Unknown]
  - Blood iron decreased [Not Recovered/Not Resolved]
  - Glycosylated haemoglobin increased [Not Recovered/Not Resolved]
  - Eye degenerative disorder [Not Recovered/Not Resolved]
  - Psoriasis [Not Recovered/Not Resolved]
